FAERS Safety Report 6803831-3 (Version None)
Quarter: 2010Q2

REPORT INFORMATION
  Report Type: 
  Country: None (occurrence: None)
  Receive Date: 20100628
  Receipt Date: 20100623
  Transmission Date: 20101027
  Serious: Yes (Death, Other)
  Sender: FDA-Public Use
  Company Number: PHHY2010JP41298

PATIENT
  Sex: Female

DRUGS (14)
  1. TASIGNA [Suspect]
     Indication: CHRONIC MYELOID LEUKAEMIA
     Dosage: 200 MG
     Route: 048
     Dates: start: 20100202, end: 20100224
  2. TASIGNA [Suspect]
     Dosage: 200 MG
     Route: 048
     Dates: start: 20100406, end: 20100602
  3. LUPRAC [Suspect]
     Dosage: 8 MG
     Route: 048
     Dates: start: 20100521
  4. LASIX [Suspect]
  5. COTRIM [Concomitant]
     Dosage: 0.5 DF
     Route: 048
     Dates: start: 20100202
  6. ADALAT [Concomitant]
     Dosage: 20 MG
     Route: 048
     Dates: start: 20100202
  7. ONEALFA [Concomitant]
     Dosage: 1.0 UG
     Route: 048
     Dates: start: 20100603
  8. ALDACTONE [Concomitant]
     Dosage: 25 MG
     Route: 048
     Dates: start: 20100603
  9. GASTER [Concomitant]
     Dosage: 20 MG
     Route: 048
     Dates: start: 20100603
  10. REBAMIPIDE [Concomitant]
     Dosage: 200 MG
     Route: 048
     Dates: start: 20100603
  11. ISCOTIN [Concomitant]
     Dosage: 400 MG
     Route: 048
     Dates: start: 20100601
  12. PREDNISOLONE [Concomitant]
     Dosage: 2 MG
     Route: 048
     Dates: start: 20100603
  13. MAGMITT [Concomitant]
     Dosage: 330 MG
     Route: 048
     Dates: start: 20100603
  14. ROHYPNOL [Concomitant]
     Dosage: UNK
     Route: 048

REACTIONS (11)
  - BLOOD CREATININE INCREASED [None]
  - BLOOD LACTATE DEHYDROGENASE INCREASED [None]
  - BLOOD UREA INCREASED [None]
  - BLOOD URIC ACID INCREASED [None]
  - GAMMA-GLUTAMYLTRANSFERASE INCREASED [None]
  - OEDEMA PERIPHERAL [None]
  - PLATELET COUNT DECREASED [None]
  - RED BLOOD CELL COUNT DECREASED [None]
  - SEPSIS [None]
  - WHITE BLOOD CELL COUNT DECREASED [None]
  - WHITE BLOOD CELL COUNT INCREASED [None]
